FAERS Safety Report 23729266 (Version 1)
Quarter: 2024Q2

REPORT INFORMATION
  Report Type: Spontaneous
  Country: US (occurrence: US)
  Receive Date: 20240410
  Receipt Date: 20240410
  Transmission Date: 20240716
  Serious: No
  Sender: FDA-Public Use
  Company Number: US-FOUNDATIONCONSUMERHC-2024-US-003975

PATIENT
  Age: 29 Year
  Sex: Female
  Weight: 55 kg

DRUGS (4)
  1. PLAN B ONE-STEP [Suspect]
     Active Substance: LEVONORGESTREL
     Indication: Post coital contraception
     Dosage: 1.5 MG X 1 DOSE
     Route: 048
     Dates: start: 20240113, end: 20240113
  2. Nutrafol Womens Hair Loss [Concomitant]
     Dosage: 1 CAPSULE DAILY
  3. VITAMINS [Concomitant]
     Active Substance: VITAMINS
     Dosage: ONE DAILY
  4. VITAMIN D [Concomitant]
     Active Substance: VITAMIN D NOS
     Dosage: DAILY

REACTIONS (4)
  - Vaginal haemorrhage [Recovered/Resolved]
  - Headache [Recovered/Resolved]
  - Abdominal pain lower [Recovered/Resolved]
  - Arthralgia [Recovered/Resolved]

NARRATIVE: CASE EVENT DATE: 20240118
